FAERS Safety Report 24189916 (Version 1)
Quarter: 2024Q3

REPORT INFORMATION
  Report Type: Spontaneous
  Country: ZA (occurrence: ZA)
  Receive Date: 20240808
  Receipt Date: 20240808
  Transmission Date: 20241017
  Serious: Yes (Other)
  Sender: SANOFI AVENTIS
  Company Number: ZA-SA-SAC20240806001360

PATIENT
  Age: 27 Year
  Sex: Female

DRUGS (3)
  1. LEFLUNOMIDE [Suspect]
     Active Substance: LEFLUNOMIDE
     Dosage: 20 MG, QD
     Route: 065
     Dates: start: 202109
  2. CHLOROQUINE [Suspect]
     Active Substance: CHLOROQUINE
     Dosage: 200 MG
     Dates: start: 202101
  3. METHOTREXATE [Suspect]
     Active Substance: METHOTREXATE
     Dosage: 25 MG, QW
     Dates: start: 202007

REACTIONS (4)
  - Hypothyroidism [Unknown]
  - Aspartate aminotransferase increased [Unknown]
  - Toxicity to various agents [Unknown]
  - Treatment failure [Unknown]

NARRATIVE: CASE EVENT DATE: 20220509
